FAERS Safety Report 23470449 (Version 1)
Quarter: 2024Q1

REPORT INFORMATION
  Report Type: Spontaneous
  Country: GB (occurrence: GB)
  Receive Date: 20240202
  Receipt Date: 20240202
  Transmission Date: 20240409
  Serious: Yes (Other)
  Sender: FDA-Public Use
  Company Number: None

PATIENT
  Age: 37 Year
  Sex: Female

DRUGS (1)
  1. PAXLOVID [Suspect]
     Active Substance: NIRMATRELVIR\RITONAVIR
     Indication: COVID-19 treatment
     Dosage: UNK
     Dates: start: 20240121

REACTIONS (8)
  - Syncope [Unknown]
  - COVID-19 [Recovering/Resolving]
  - Disease recurrence [Recovering/Resolving]
  - Tachycardia [Unknown]
  - Palpitations [Unknown]
  - Back pain [Unknown]
  - Chest pain [Unknown]
  - Neck pain [Unknown]

NARRATIVE: CASE EVENT DATE: 20240129
